FAERS Safety Report 8942319 (Version 1)
Quarter: 2012Q4

REPORT INFORMATION
  Report Type: Spontaneous
  Country: US (occurrence: None)
  Receive Date: 20121123
  Receipt Date: 20121123
  Transmission Date: 20130627
  Serious: Yes (Death, Hospitalization)
  Sender: FDA-Public Use
  Company Number: 2012SUN00278

PATIENT
  Age: 51 Year
  Sex: Female

DRUGS (2)
  1. CARISOPRODOL [Suspect]
     Indication: DRUG USE FOR UNKNOWN INDICATION
     Route: 048
  2. CLONAZEPAM [Suspect]
     Indication: DRUG USE FOR UNKNOWN INDICATION

REACTIONS (11)
  - Urinary bladder rupture [None]
  - Intentional overdose [None]
  - Pneumonia aspiration [None]
  - Urinary bladder rupture [None]
  - Unresponsive to stimuli [None]
  - Pneumonitis [None]
  - Toxicity to various agents [None]
  - Tachypnoea [None]
  - Hyperhidrosis [None]
  - Pain [None]
  - Soft tissue haemorrhage [None]
